FAERS Safety Report 10705825 (Version 1)
Quarter: 2015Q1

REPORT INFORMATION
  Report Type: Spontaneous
  Country: HR (occurrence: HR)
  Receive Date: 20150112
  Receipt Date: 20150112
  Transmission Date: 20150721
  Serious: Yes (Hospitalization)
  Sender: FDA-Public Use
  Company Number: HR-ROCHE-1520044

PATIENT
  Age: 64 Year
  Sex: Male
  Weight: 93 kg

DRUGS (1)
  1. ROACTEMRA [Suspect]
     Active Substance: TOCILIZUMAB
     Indication: RHEUMATOID ARTHRITIS
     Dosage: 1X MJESECNO
     Route: 042
     Dates: start: 20140922

REACTIONS (3)
  - Oedema peripheral [Recovering/Resolving]
  - Synovial rupture [Recovering/Resolving]
  - Venous thrombosis limb [Recovering/Resolving]

NARRATIVE: CASE EVENT DATE: 20141007
